FAERS Safety Report 23206346 (Version 3)
Quarter: 2024Q1

REPORT INFORMATION
  Report Type: Spontaneous
  Country: JP (occurrence: JP)
  Receive Date: 20231120
  Receipt Date: 20240110
  Transmission Date: 20240409
  Serious: Yes (Other)
  Sender: FDA-Public Use
  Company Number: JP-002147023-NVSJ2023JP016346

PATIENT
  Age: 0 Year
  Weight: 4.9 kg

DRUGS (5)
  1. NEORAL [Suspect]
     Active Substance: CYCLOSPORINE
     Indication: Kawasaki^s disease
     Dosage: 8.6 MG/KG
     Route: 048
     Dates: start: 20231109, end: 20231114
  2. NEORAL [Suspect]
     Active Substance: CYCLOSPORINE
     Dosage: 4.3 MG/KG
     Route: 048
     Dates: start: 20231115, end: 20231117
  3. IMMUNE GLOBULIN NOS [Concomitant]
     Active Substance: IMMUNE GLOBULIN NOS
     Indication: Product used for unknown indication
     Dosage: 2 GRAM PER KILOGRAM
     Route: 042
     Dates: start: 20231109, end: 20231110
  4. ASPIRIN [Concomitant]
     Active Substance: ASPIRIN
     Indication: Product used for unknown indication
     Dosage: 50 MG/KG
     Route: 048
     Dates: start: 20231107, end: 20231114
  5. ASPIRIN [Concomitant]
     Active Substance: ASPIRIN
     Dosage: 5 MG/KG
     Route: 048
     Dates: start: 20231115

REACTIONS (2)
  - Hyperkalaemia [Recovered/Resolved]
  - Immunosuppressant drug level increased [Unknown]

NARRATIVE: CASE EVENT DATE: 20231114
